FAERS Safety Report 5675978-9 (Version None)
Quarter: 2008Q2

REPORT INFORMATION
  Report Type: 
  Country: None (occurrence: None)
  Receive Date: 20080310
  Receipt Date: 20071220
  Transmission Date: 20081010
  Serious: Yes (Other)
  Sender: FDA-Public Use
  Company Number: 07-539

PATIENT
  Age: 18 Year
  Sex: Female

DRUGS (4)
  1. ALEVE [Suspect]
     Indication: MYALGIA
     Dosage: 440 MG, ONCE, ORAL
     Route: 048
     Dates: start: 20071205
  2. ALEVE [Suspect]
     Indication: NASOPHARYNGITIS
     Dosage: 440 MG, ONCE, ORAL
     Route: 048
     Dates: start: 20071205
  3. ALEVE [Suspect]
     Indication: MYALGIA
     Dosage: 440 MG, ONCE, ORAL
     Route: 048
     Dates: start: 20071205
  4. ALEVE [Suspect]
     Indication: NASOPHARYNGITIS
     Dosage: 440 MG, ONCE, ORAL
     Route: 048
     Dates: start: 20071205

REACTIONS (4)
  - MYALGIA [None]
  - PILOERECTION [None]
  - TREMOR [None]
  - VOMITING [None]
